FAERS Safety Report 19797062 (Version 1)
Quarter: 2021Q3

REPORT INFORMATION
  Report Type: Spontaneous
  Country: US (occurrence: US)
  Receive Date: 20210907
  Receipt Date: 20210907
  Transmission Date: 20211014
  Serious: No
  Sender: FDA-Public Use
  Company Number: US-APOTEX-2021AP039813

PATIENT
  Age: 47 Year
  Sex: Male

DRUGS (15)
  1. KETAMINE [Concomitant]
     Active Substance: KETAMINE
     Indication: PHANTOM LIMB SYNDROME
     Dosage: 0.5 MILLIGRAM/KILOGRAM, Q.H. FOR 5?7 DAYS
     Route: 042
  2. GABAPENTIN. [Suspect]
     Active Substance: GABAPENTIN
     Indication: PHANTOM LIMB SYNDROME
     Dosage: 1200 MILLIGRAM, TID
     Route: 048
  3. OXYCODONE [Concomitant]
     Active Substance: OXYCODONE
     Indication: PHANTOM LIMB SYNDROME
     Dosage: UNK
     Route: 065
  4. HYDROMORPHONE [Concomitant]
     Active Substance: HYDROMORPHONE
     Indication: PHANTOM LIMB SYNDROME
     Dosage: 24?40 MG/DAY (160?280 MME ORAL MORPHINE)
     Route: 048
  5. CYMBALTA [Concomitant]
     Active Substance: DULOXETINE HYDROCHLORIDE
     Indication: ANTIDEPRESSANT THERAPY
     Dosage: UNK
     Route: 065
  6. LIDOCAINE. [Concomitant]
     Active Substance: LIDOCAINE
     Indication: PHANTOM LIMB SYNDROME
     Dosage: UNK
     Route: 042
  7. ROPIVACAINE. [Concomitant]
     Active Substance: ROPIVACAINE HYDROCHLORIDE
     Indication: PHANTOM LIMB SYNDROME
     Dosage: UNK
     Route: 065
  8. EFFEXOR [Concomitant]
     Active Substance: VENLAFAXINE HYDROCHLORIDE
     Indication: ANTIDEPRESSANT THERAPY
     Dosage: UNK UNK, QD
     Route: 065
  9. LIDOCAINE. [Concomitant]
     Active Substance: LIDOCAINE
     Indication: PHANTOM LIMB SYNDROME
     Dosage: UNK
     Route: 065
  10. KETAMINE [Concomitant]
     Active Substance: KETAMINE
     Indication: PHANTOM LIMB SYNDROME
     Dosage: 400?600 MG PER DAY
     Route: 048
  11. NORCO [Concomitant]
     Active Substance: ACETAMINOPHEN\HYDROCODONE BITARTRATE
     Indication: PHANTOM LIMB SYNDROME
     Dosage: UNK
     Route: 065
  12. HYDROMORPHONE [Concomitant]
     Active Substance: HYDROMORPHONE
     Indication: PHANTOM LIMB SYNDROME
     Dosage: UNK
     Route: 042
  13. PREGABALIN. [Concomitant]
     Active Substance: PREGABALIN
     Indication: PHANTOM LIMB SYNDROME
     Dosage: UNK
     Route: 065
  14. MEXILETINE [Concomitant]
     Active Substance: MEXILETINE
     Indication: PHANTOM LIMB SYNDROME
     Dosage: UNK UNK, QD
     Route: 048
  15. KETAMINE [Concomitant]
     Active Substance: KETAMINE
     Indication: PHANTOM LIMB SYNDROME
     Dosage: UNK
     Route: 060

REACTIONS (1)
  - Tinnitus [Not Recovered/Not Resolved]
